FAERS Safety Report 14309918 (Version 1)
Quarter: 2017Q4

REPORT INFORMATION
  Report Type: Spontaneous
  Country: FR (occurrence: FR)
  Receive Date: 20171220
  Receipt Date: 20171220
  Transmission Date: 20180321
  Serious: Yes (Hospitalization)
  Sender: FDA-Public Use
  Company Number: FR-EISAI MEDICAL RESEARCH-EC-2017-034226

PATIENT
  Age: 80 Year
  Sex: Female
  Weight: 61 kg

DRUGS (2)
  1. MOTILIUM [Suspect]
     Active Substance: DOMPERIDONE
     Indication: PRODUCT USED FOR UNKNOWN INDICATION
     Dosage: UNKNOWN
     Route: 048
     Dates: start: 20170818
  2. ARICEPT [Suspect]
     Active Substance: DONEPEZIL HYDROCHLORIDE
     Indication: DEMENTIA
     Route: 048
     Dates: start: 20170718, end: 20170808

REACTIONS (4)
  - Fall [Recovered/Resolved]
  - Diarrhoea [Recovered/Resolved]
  - Hypertension [Recovered/Resolved]
  - Weight decreased [Recovered/Resolved]

NARRATIVE: CASE EVENT DATE: 201707
